FAERS Safety Report 6945429-2 (Version None)
Quarter: 2010Q3

REPORT INFORMATION
  Report Type: 
  Country: None (occurrence: None)
  Receive Date: 20100827
  Receipt Date: 20100817
  Transmission Date: 20110219
  Serious: Yes (Hospitalization)
  Sender: FDA-Public Use
  Company Number: JP-ROCHE-719263

PATIENT
  Sex: Female
  Weight: 47 kg

DRUGS (19)
  1. TRASTUZUMAB [Suspect]
     Dosage: LOADING DOSE.
     Route: 042
  2. TRASTUZUMAB [Suspect]
     Dosage: DOSAGE FORM: INFUSION
     Route: 042
     Dates: start: 20100224
  3. PERTUZUMAB [Suspect]
     Dosage: DOSAGE FORM: INFUSION
     Route: 042
     Dates: start: 20100223
  4. DOCETAXEL [Suspect]
     Dosage: DOSAGE FORM: INFUSION, DOSE AS PER PROTOCOL
     Route: 042
     Dates: start: 20100224
  5. METOCLOPRAMIDE [Concomitant]
     Dates: start: 20100302
  6. TEPRENONE [Concomitant]
     Dates: start: 20100302
  7. LANSOPRAZOLE [Concomitant]
     Dates: start: 20100308
  8. FERROUS SULFATE TAB [Concomitant]
     Dosage: DRUG NAME: DRIED FERROUS SULPHATE
     Dates: start: 20100526
  9. FUROSEMIDE [Concomitant]
     Dates: start: 20100609
  10. OXYCODONE HCL [Concomitant]
     Dosage: DRUG REPORTED AS OXYCODONE HYDROCHLORIDE HYDRAT
     Dates: start: 20100219
  11. CLONAZEPAM [Concomitant]
     Dates: start: 20100219
  12. ETIZOLAM [Concomitant]
     Dates: start: 20060201
  13. AMMONIUM GLYCYRRHIZINATE [Concomitant]
     Dosage: DRUG REPORTED AS MONOAMMONIUM GLYCYRRHIZINATE
     Dates: start: 20100224, end: 20100406
  14. AMMONIUM GLYCYRRHIZINATE [Concomitant]
     Dates: start: 20091215, end: 20100216
  15. AMMONIUM GLYCYRRHIZINATE [Concomitant]
     Dates: start: 20100616
  16. MECOBALAMIN [Concomitant]
     Dates: start: 20100619
  17. CHINESE MEDICINE NOS [Concomitant]
  18. FLUNITRAZEPAM [Concomitant]
     Dates: start: 20100526
  19. AZULENE SULFONATE SODIUM [Concomitant]
     Dosage: DRUG NAME REPORTED AS AZULENE SULFONATE HYDRATED SODIUM.
     Dates: start: 20100630

REACTIONS (2)
  - MUSCULAR WEAKNESS [None]
  - URINARY TRACT INFECTION [None]
